FAERS Safety Report 6731771-7 (Version None)
Quarter: 2010Q2

REPORT INFORMATION
  Report Type: 
  Country: None (occurrence: None)
  Receive Date: 20100519
  Receipt Date: 20100513
  Transmission Date: 20101027
  Serious: Yes (Other)
  Sender: FDA-Public Use
  Company Number: US-PFIZER INC-2010061162

PATIENT
  Sex: Female
  Weight: 48.526 kg

DRUGS (4)
  1. CHANTIX [Suspect]
     Indication: SMOKING CESSATION THERAPY
     Dosage: UNK
     Dates: start: 20090601
  2. XANAX [Concomitant]
     Dosage: UNK
  3. KLONOPIN [Concomitant]
     Dosage: UNK
  4. VIOKASE [Concomitant]
     Indication: PANCREATITIS CHRONIC
     Dosage: UNK

REACTIONS (5)
  - ABNORMAL DREAMS [None]
  - DEPRESSION [None]
  - INSOMNIA [None]
  - LIBIDO DECREASED [None]
  - PANCREATIC ENZYMES ABNORMAL [None]
